FAERS Safety Report 12574032 (Version 1)
Quarter: 2016Q3

REPORT INFORMATION
  Report Type: Spontaneous
  Country: FR (occurrence: FR)
  Receive Date: 20160720
  Receipt Date: 20160720
  Transmission Date: 20161109
  Serious: Yes (Hospitalization)
  Sender: FDA-Public Use
  Company Number: FR-TEVA-675711ISR

PATIENT
  Age: 69 Year
  Sex: Male

DRUGS (13)
  1. FLUOROURACIL ACCORD [Suspect]
     Active Substance: FLUOROURACIL
     Dosage: 4800 MILLIGRAM DAILY; FIRST COURSE OF CHEMOTHERAPY PROTOCOL FOLFOX
     Route: 041
     Dates: start: 20160301, end: 201603
  2. FLUOROURACIL ACCORD [Suspect]
     Active Substance: FLUOROURACIL
     Dosage: 4800 MILLIGRAM DAILY; SECOND COURSE OF CHEMOTHERAPY PROTOCOL FOLFOX
     Route: 041
     Dates: start: 20160315, end: 201603
  3. UROREC [Concomitant]
     Active Substance: SILODOSIN
     Dosage: 1 DOSAGE FORMS DAILY;
     Route: 048
     Dates: start: 2015
  4. LODOZ 10 MG/6.25 MG [Concomitant]
     Dosage: 1 DOSAGE FORMS DAILY; 10 MG BISOPROLOL/6.25 MG HYDROCHLOROTHIAZIDE
     Route: 048
     Dates: start: 2015
  5. OXALIPLATINE TEVA [Suspect]
     Active Substance: OXALIPLATIN
     Dosage: 170 MILLIGRAM DAILY; THIRD COURSE OF CHEMOTHERAPY PROTOCOL FOLFOX
     Route: 041
     Dates: start: 20160329, end: 2016
  6. OXALIPLATINE TEVA [Suspect]
     Active Substance: OXALIPLATIN
     Dosage: 170 MILLIGRAM DAILY; SECOND COURSE OF CHEMOTHERAPY PROTOCOL FOLFOX
     Route: 041
     Dates: start: 20160315, end: 201603
  7. KARDEGIC [Concomitant]
     Active Substance: ASPIRIN LYSINE
     Dosage: 1 DOSAGE FORMS DAILY;
     Route: 048
     Dates: start: 2015
  8. LYRICA 300 MG [Concomitant]
     Dosage: 1 DOSAGE FORMS DAILY;
     Route: 048
     Dates: start: 2015
  9. OXALIPLATINE TEVA [Suspect]
     Active Substance: OXALIPLATIN
     Indication: OESOPHAGEAL CANCER METASTATIC
     Dosage: 170 MILLIGRAM DAILY; FIRST COURSE OF CHEMOTHERAPY PROTOCOL FOLFOX
     Route: 041
     Dates: start: 20160301, end: 201603
  10. FLUOROURACIL ACCORD [Suspect]
     Active Substance: FLUOROURACIL
     Indication: OESOPHAGEAL CANCER METASTATIC
     Dosage: 800 MILLIGRAM DAILY; FIRST COURSE OF CHEMOTHERAPY PROTOCOL FOLFOX
     Route: 040
     Dates: start: 20160301
  11. FLUOROURACIL ACCORD [Suspect]
     Active Substance: FLUOROURACIL
     Dosage: 800 MILLIGRAM DAILY; THIRD COURSE OF CHEMOTHERAPY PROTOCOL FOLFOX
     Route: 040
     Dates: start: 20160329
  12. FLUOROURACIL ACCORD [Suspect]
     Active Substance: FLUOROURACIL
     Dosage: 800 MILLIGRAM DAILY; SECOND COURSE OF CHEMOTHERAPY PROTOCOL FOLFOX
     Route: 040
     Dates: start: 20160315
  13. FLUOROURACIL ACCORD [Suspect]
     Active Substance: FLUOROURACIL
     Dosage: 4800 MILLIGRAM DAILY; THIRD COURSE OF CHEMOTHERAPY PROTOCOL FOLFOX
     Route: 041
     Dates: start: 20160329, end: 2016

REACTIONS (1)
  - Ischaemic cerebral infarction [Recovering/Resolving]

NARRATIVE: CASE EVENT DATE: 20160407
